FAERS Safety Report 21695893 (Version 1)
Quarter: 2022Q4

REPORT INFORMATION
  Report Type: Report from Study
  Country: US (occurrence: US)
  Receive Date: 20221207
  Receipt Date: 20221207
  Transmission Date: 20230113
  Serious: No
  Sender: FDA-Public Use
  Company Number: US-ABBVIE-4225272

PATIENT
  Sex: Male

DRUGS (2)
  1. IMBRUVICA [Suspect]
     Active Substance: IBRUTINIB
     Indication: Waldenstrom^s macroglobulinaemia
     Route: 048
     Dates: end: 20221107
  2. WARFARIN [Suspect]
     Active Substance: WARFARIN
     Indication: Product used for unknown indication
     Route: 065

REACTIONS (6)
  - Skin discolouration [Recovering/Resolving]
  - Rash [Recovering/Resolving]
  - Cardiac disorder [Recovering/Resolving]
  - Drug interaction [Unknown]
  - Therapeutic product effect incomplete [Recovering/Resolving]
  - Urinary tract infection [Recovering/Resolving]
